FAERS Safety Report 21097130 (Version 1)
Quarter: 2022Q3

REPORT INFORMATION
  Report Type: Report from Study
  Country: US (occurrence: US)
  Receive Date: 20220719
  Receipt Date: 20220719
  Transmission Date: 20221027
  Serious: Yes (Other)
  Sender: FDA-Public Use
  Company Number: US-ABBVIE-22K-163-4470705-00

PATIENT
  Age: 65 Year
  Sex: Female

DRUGS (2)
  1. DUOPA [Suspect]
     Active Substance: CARBIDOPA\LEVODOPA
     Indication: Product used for unknown indication
     Route: 050
     Dates: start: 20210727
  2. DUOPA [Suspect]
     Active Substance: CARBIDOPA\LEVODOPA

REACTIONS (12)
  - Loss of consciousness [Unknown]
  - Device breakage [Unknown]
  - Crepitations [Unknown]
  - Painful respiration [Unknown]
  - Arthralgia [Unknown]
  - Contusion [Unknown]
  - Head injury [Unknown]
  - Skin mass [Unknown]
  - Eye contusion [Unknown]
  - Fall [Recovered/Resolved]
  - Fall [Unknown]
  - Fall [Recovered/Resolved]

NARRATIVE: CASE EVENT DATE: 20220701
